FAERS Safety Report 16990162 (Version 1)
Quarter: 2019Q4

REPORT INFORMATION
  Report Type: Spontaneous
  Country: US (occurrence: US)
  Receive Date: 20190920
  Receipt Date: 20190920
  Transmission Date: 20200122
  Serious: Yes (Other)
  Sender: FDA-Public Use
  Company Number: None

PATIENT
  Age: 43 Year
  Sex: Male
  Weight: 79.83 kg

DRUGS (5)
  1. ZYRTEC [Suspect]
     Active Substance: CETIRIZINE HYDROCHLORIDE
     Indication: MULTIPLE ALLERGIES
     Dosage: ?          QUANTITY:1 DF DOSAGE FORM;?
     Route: 048
     Dates: start: 201505
  2. MULTIVITAMINS [Concomitant]
     Active Substance: VITAMINS
  3. FLONASE SPRAY [Concomitant]
  4. BAYER [Concomitant]
     Active Substance: ASPIRIN
  5. FISH OIL [Concomitant]
     Active Substance: FISH OIL

REACTIONS (2)
  - Drug withdrawal syndrome [None]
  - Pruritus [None]

NARRATIVE: CASE EVENT DATE: 20190903
